FAERS Safety Report 12517351 (Version 1)
Quarter: 2016Q2

REPORT INFORMATION
  Report Type: Spontaneous
  Country: US (occurrence: US)
  Receive Date: 20160630
  Receipt Date: 20160630
  Transmission Date: 20160815
  Serious: No
  Sender: FDA-Public Use
  Company Number: US-GLAXOSMITHKLINE-US2016088947

PATIENT
  Age: 50 Year
  Sex: Female

DRUGS (20)
  1. ASPIRIN. [Concomitant]
     Active Substance: ASPIRIN
  2. FENOFIBRATE. [Concomitant]
     Active Substance: FENOFIBRATE
  3. FISH OIL [Concomitant]
     Active Substance: FISH OIL
  4. METFORMIN [Concomitant]
     Active Substance: METFORMIN HYDROCHLORIDE
  5. PROPRANOLOL [Concomitant]
     Active Substance: PROPRANOLOL\PROPRANOLOL HYDROCHLORIDE
  6. REBIF [Concomitant]
     Active Substance: INTERFERON BETA-1A
  7. TANZEUM [Suspect]
     Active Substance: ALBIGLUTIDE
     Indication: DIABETES MELLITUS
     Dosage: 30 MG, WE
     Dates: start: 201606
  8. COENZYME Q10 [Concomitant]
     Active Substance: UBIDECARENONE
  9. VITAMIN D3 [Concomitant]
     Active Substance: CHOLECALCIFEROL
  10. VITAMIN B12 [Concomitant]
     Active Substance: CYANOCOBALAMIN
  11. EVENING PRIMROSE OIL [Concomitant]
     Active Substance: EVENING PRIMROSE OIL
  12. NOVOLOG [Concomitant]
     Active Substance: INSULIN ASPART
  13. ZOLOFT [Concomitant]
     Active Substance: SERTRALINE HYDROCHLORIDE
  14. CHROMIUM PICOLINATE [Concomitant]
     Active Substance: CHROMIUM PICOLINATE
  15. FEXOFENADINE [Concomitant]
     Active Substance: FEXOFENADINE\FEXOFENADINE HYDROCHLORIDE
  16. GLYBURIDE. [Concomitant]
     Active Substance: GLYBURIDE
  17. LEVEMIR [Concomitant]
     Active Substance: INSULIN DETEMIR
  18. LEVOTHYROXINE. [Concomitant]
     Active Substance: LEVOTHYROXINE
  19. MICROGESTIN [Concomitant]
     Active Substance: ETHINYL ESTRADIOL\NORETHINDRONE ACETATE
  20. SIMVASTATIN. [Concomitant]
     Active Substance: SIMVASTATIN

REACTIONS (2)
  - Poor quality sleep [Unknown]
  - Abnormal dreams [Not Recovered/Not Resolved]

NARRATIVE: CASE EVENT DATE: 201606
